FAERS Safety Report 8797316 (Version 1)
Quarter: 2012Q4

REPORT INFORMATION
  Report Type: 
  Country: FR (occurrence: FR)
  Receive Date: 20120919
  Receipt Date: 20120919
  Transmission Date: 20130627
  Serious: Yes (Other)
  Sender: FDA-Public Use
  Company Number: FR-PFIZER INC-2012227568

PATIENT
  Age: 85 Year
  Sex: Female

DRUGS (15)
  1. LYRICA [Suspect]
     Indication: PAIN
     Dosage: 25 mg, 2x/day
     Route: 048
     Dates: end: 20120802
  2. LYRICA [Suspect]
     Dosage: 200 mg, 2x/day
     Route: 048
     Dates: start: 20120803, end: 20120807
  3. LYRICA [Suspect]
     Dosage: 25 mg, 2x/day
     Route: 048
     Dates: start: 20120809
  4. CEFIXIME [Concomitant]
     Indication: URINARY TRACT INFECTION
     Dosage: 200 UNK, 2x/day
     Dates: start: 20120801, end: 20120802
  5. DEBRIDAT [Concomitant]
  6. VENLAFAXINE [Concomitant]
     Dosage: sustained release 75
  7. DOLIPRANE [Concomitant]
     Dosage: 1 g, 3x/day
  8. ESOMEPRAZOLE [Concomitant]
     Dosage: 20
  9. LEXOMIL [Concomitant]
     Dosage: 0.5 DF, 1x/day
  10. KARDEGIC [Concomitant]
     Dosage: 75 mg
  11. LOSARTAN [Concomitant]
     Dosage: 50 mg
  12. TRANSIPEG [Concomitant]
  13. DELURSAN [Concomitant]
  14. ZYMA-D2 [Concomitant]
  15. ACTONEL [Concomitant]

REACTIONS (10)
  - Hypokalaemia [Recovered/Resolved]
  - Drug prescribing error [Unknown]
  - Incorrect dose administered [Recovered/Resolved]
  - Vomiting [Not Recovered/Not Resolved]
  - Blood test abnormal [Unknown]
  - Vertigo positional [Unknown]
  - Nystagmus [Unknown]
  - Hypochloraemia [Recovered/Resolved]
  - Head injury [Unknown]
  - Fall [Unknown]
